FAERS Safety Report 8807969 (Version 1)
Quarter: 2012Q4

REPORT INFORMATION
  Report Type: 
  Country: GR (occurrence: GR)
  Receive Date: 20120925
  Receipt Date: 20120925
  Transmission Date: 20130627
  Serious: Yes (Other)
  Sender: FDA-Public Use
  Company Number: GR-PFIZER INC-2012233814

PATIENT
  Age: 44 Year
  Sex: Male

DRUGS (2)
  1. FLUCONAZOLE [Suspect]
     Dosage: 400 mg, 1x/day
     Route: 048
  2. AMPHOTERICIN B [Concomitant]
     Dosage: 3 mg/kg, UNK

REACTIONS (2)
  - Drug ineffective [Recovered/Resolved]
  - Adrenal insufficiency [Recovered/Resolved]
